FAERS Safety Report 25097289 (Version 1)
Quarter: 2025Q1

REPORT INFORMATION
  Report Type: Report from Study
  Country: CA (occurrence: CA)
  Receive Date: 20250320
  Receipt Date: 20250320
  Transmission Date: 20250409
  Serious: Yes (Other)
  Sender: ABBVIE
  Company Number: CA-ABBVIE-6184037

PATIENT
  Age: 45 Year
  Sex: Female

DRUGS (1)
  1. SKYRIZI [Suspect]
     Active Substance: RISANKIZUMAB-RZAA
     Indication: Crohn^s disease
     Dosage: DOSE: 360MG/2.4ML
     Route: 058

REACTIONS (11)
  - Acute coronary syndrome [Unknown]
  - Paraesthesia [Recovered/Resolved]
  - Chest discomfort [Recovered/Resolved]
  - Non-cardiac chest pain [Recovered/Resolved]
  - Stress [Recovered/Resolved]
  - Gastrooesophageal reflux disease [Recovered/Resolved]
  - Urinary tract infection [Recovered/Resolved]
  - Aortic dissection [Unknown]
  - Pulmonary embolism [Unknown]
  - Angina pectoris [Recovered/Resolved]
  - Crohn^s disease [Not Recovered/Not Resolved]

NARRATIVE: CASE EVENT DATE: 20250204
